FAERS Safety Report 7312772-7 (Version None)
Quarter: 2011Q1

REPORT INFORMATION
  Report Type: 
  Country: None (occurrence: None)
  Receive Date: 20110224
  Receipt Date: 20110214
  Transmission Date: 20110831
  Serious: Yes (Other)
  Sender: FDA-Public Use
  Company Number: US-WATSON-2011-01275

PATIENT
  Sex: Male

DRUGS (6)
  1. PYRIDOXINE HYDROCHLORIDE [Suspect]
     Indication: SUPPLEMENTATION THERAPY
     Dosage: 25 MG, DAILY
  2. FOLIC ACID (WATSON LABORATORIES) [Suspect]
     Indication: DIABETIC NEPHROPATHY
  3. CYANOCOBALAMIN [Suspect]
     Indication: SUPPLEMENTATION THERAPY
     Dosage: 1 MG, DAILY
  4. PYRIDOXINE HYDROCHLORIDE [Suspect]
     Indication: DIABETIC NEPHROPATHY
  5. FOLIC ACID (WATSON LABORATORIES) [Suspect]
     Indication: SUPPLEMENTATION THERAPY
     Dosage: 2.5 MG, DAILY
  6. CYANOCOBALAMIN [Suspect]
     Indication: DIABETIC NEPHROPATHY

REACTIONS (5)
  - MYOCARDIAL INFARCTION [None]
  - CEREBROVASCULAR ACCIDENT [None]
  - CARDIAC DISORDER [None]
  - DEATH [None]
  - GLOMERULAR FILTRATION RATE DECREASED [None]
